FAERS Safety Report 15579764 (Version 1)
Quarter: 2018Q4

REPORT INFORMATION
  Report Type: Report from Study
  Country: CA (occurrence: CA)
  Receive Date: 20181102
  Receipt Date: 20181102
  Transmission Date: 20190205
  Serious: Yes (Other)
  Sender: FDA-Public Use
  Company Number: PHHY2018CA142382

PATIENT
  Age: 73 Year
  Sex: Female

DRUGS (1)
  1. SANDOSTATIN LAR DEPOT [Suspect]
     Active Substance: OCTREOTIDE ACETATE
     Indication: CARCINOID TUMOUR
     Dosage: 30 MG, QMO
     Route: 030
     Dates: start: 20181019, end: 20181019

REACTIONS (4)
  - Burning sensation [Unknown]
  - Injection site hypersensitivity [Unknown]
  - Pruritus [Unknown]
  - Rash generalised [Unknown]

NARRATIVE: CASE EVENT DATE: 20181019
